FAERS Safety Report 18029388 (Version 2)
Quarter: 2021Q4

REPORT INFORMATION
  Report Type: Report from Study
  Country: FR (occurrence: FR)
  Receive Date: 20200715
  Receipt Date: 20211102
  Transmission Date: 20220303
  Serious: Yes (Other)
  Sender: FDA-Public Use
  Company Number: FR-JNJFOC-20200711725

PATIENT
  Age: 79 Year
  Sex: Male

DRUGS (2)
  1. BORTEZOMIB [Suspect]
     Active Substance: BORTEZOMIB
     Indication: Plasma cell myeloma
     Dosage: 1.3 MILLIGRAM/SQ. METER, 2/WEEK
     Route: 065
     Dates: end: 20180330
  2. DEXAMETHASONE [Suspect]
     Active Substance: DEXAMETHASONE
     Indication: Plasma cell myeloma
     Dosage: 20 MILLIGRAM, 2/WEEK
     Route: 065
     Dates: end: 20180330

REACTIONS (3)
  - Cataract [Unknown]
  - Orthostatic hypotension [Unknown]
  - Tremor [Unknown]

NARRATIVE: CASE EVENT DATE: 20180301
